FAERS Safety Report 24308276 (Version 2)
Quarter: 2024Q4

REPORT INFORMATION
  Report Type: Other
  Country: BR (occurrence: BR)
  Receive Date: 20240911
  Receipt Date: 20241008
  Transmission Date: 20250115
  Serious: No
  Sender: TOLMAR
  Company Number: BR-TOLMAR, INC.-24BR051984

PATIENT
  Sex: Female

DRUGS (3)
  1. ELIGARD [Suspect]
     Active Substance: LEUPROLIDE ACETATE
     Indication: Precocious puberty
     Dosage: 45 MILLIGRAM
     Route: 058
  2. ELIGARD [Suspect]
     Active Substance: LEUPROLIDE ACETATE
     Dosage: 45 MILLIGRAM
     Route: 058
     Dates: start: 20240311
  3. ELIGARD [Suspect]
     Active Substance: LEUPROLIDE ACETATE
     Indication: Precocious puberty
     Dosage: UNK

REACTIONS (2)
  - Acne [Unknown]
  - Irritability [Unknown]
